FAERS Safety Report 14820135 (Version 1)
Quarter: 2018Q2

REPORT INFORMATION
  Report Type: Spontaneous
  Country: US (occurrence: US)
  Receive Date: 20180427
  Receipt Date: 20180427
  Transmission Date: 20180711
  Serious: No
  Sender: FDA-Public Use
  Company Number: US-ASTRAZENECA-2018SE41058

PATIENT
  Age: 914 Month
  Sex: Female
  Weight: 72.6 kg

DRUGS (4)
  1. SYMBICORT [Suspect]
     Active Substance: BUDESONIDE\FORMOTEROL FUMARATE DIHYDRATE
     Indication: CHRONIC OBSTRUCTIVE PULMONARY DISEASE
     Dosage: 160/4.5 MCG, 2 PUFFS, TWICE A DAY
     Route: 055
     Dates: start: 201802
  2. SYMBICORT [Suspect]
     Active Substance: BUDESONIDE\FORMOTEROL FUMARATE DIHYDRATE
     Indication: EMPHYSEMA
     Dosage: 160/4.5 MCG, 2 PUFFS, TWICE A DAY
     Route: 055
     Dates: start: 201802
  3. SYMBICORT [Suspect]
     Active Substance: BUDESONIDE\FORMOTEROL FUMARATE DIHYDRATE
     Indication: BRONCHITIS
     Dosage: 160/4.5 MCG, 2 PUFFS, TWICE A DAY
     Route: 055
     Dates: start: 201802
  4. ZOLOFT GENERIC [Concomitant]
     Active Substance: SERTRALINE HYDROCHLORIDE
     Indication: FAMILY STRESS
     Route: 048
     Dates: start: 2017

REACTIONS (6)
  - Off label use [Not Recovered/Not Resolved]
  - Muscle spasms [Not Recovered/Not Resolved]
  - Product use issue [Not Recovered/Not Resolved]
  - Dysphagia [Not Recovered/Not Resolved]
  - Throat irritation [Not Recovered/Not Resolved]
  - Dysphonia [Not Recovered/Not Resolved]

NARRATIVE: CASE EVENT DATE: 201802
